FAERS Safety Report 23219360 (Version 1)
Quarter: 2023Q4

REPORT INFORMATION
  Report Type: Report from Study
  Country: JP (occurrence: JP)
  Receive Date: 20231122
  Receipt Date: 20231122
  Transmission Date: 20240110
  Serious: Yes (Other)
  Sender: FDA-Public Use
  Company Number: JP-ALXN-202311JPN000879JP

PATIENT
  Sex: Male
  Weight: 71.7 kg

DRUGS (9)
  1. SOLIRIS [Suspect]
     Active Substance: ECULIZUMAB
     Indication: Myasthenia gravis
     Dosage: 900 MILLIGRAM, QW
     Route: 042
     Dates: start: 20210217, end: 20210310
  2. SOLIRIS [Suspect]
     Active Substance: ECULIZUMAB
     Dosage: 1200 MILLIGRAM, Q2W
     Route: 042
     Dates: start: 20210317
  3. PROGRAF [Concomitant]
     Active Substance: TACROLIMUS
     Indication: Myasthenia gravis
     Dosage: 3 MILLIGRAM, QD
     Route: 048
     Dates: start: 20200821
  4. PREDNISOLONE [Concomitant]
     Active Substance: PREDNISOLONE
     Indication: Myasthenia gravis
     Dosage: 10 MILLIGRAM, QD
     Route: 048
     Dates: start: 20200821, end: 20210706
  5. PREDNISOLONE [Concomitant]
     Active Substance: PREDNISOLONE
     Dosage: 9 MILLIGRAM, QD
     Route: 048
     Dates: start: 20210707, end: 20210831
  6. PREDNISOLONE [Concomitant]
     Active Substance: PREDNISOLONE
     Dosage: 8 MILLIGRAM, QD
     Route: 048
     Dates: start: 20210901, end: 20211026
  7. PREDNISOLONE [Concomitant]
     Active Substance: PREDNISOLONE
     Dosage: 7 MILLIGRAM, QD
     Route: 048
     Dates: start: 20211027, end: 20211221
  8. PREDNISOLONE [Concomitant]
     Active Substance: PREDNISOLONE
     Dosage: 6 MILLIGRAM, QD
     Route: 048
     Dates: start: 20211222, end: 20220215
  9. PREDNISOLONE [Concomitant]
     Active Substance: PREDNISOLONE
     Dosage: 5 MILLIGRAM, QD
     Route: 048
     Dates: start: 20220216

REACTIONS (1)
  - Myasthenia gravis [Unknown]
